FAERS Safety Report 22287614 (Version 14)
Quarter: 2024Q1

REPORT INFORMATION
  Report Type: Report from Study
  Country: US (occurrence: US)
  Receive Date: 20230505
  Receipt Date: 20240320
  Transmission Date: 20240410
  Serious: Yes (Other)
  Sender: FDA-Public Use
  Company Number: US-002147023-NVSC2023US099347

PATIENT
  Age: 49 Year
  Sex: Female

DRUGS (1)
  1. KESIMPTA [Suspect]
     Active Substance: OFATUMUMAB
     Indication: Product used for unknown indication
     Dosage: 20 MG
     Route: 065

REACTIONS (28)
  - Pneumonia [Unknown]
  - Feeling of body temperature change [Unknown]
  - Road traffic accident [Unknown]
  - Rhinorrhoea [Not Recovered/Not Resolved]
  - Anaesthesia oral [Unknown]
  - Fear-related avoidance of activities [Unknown]
  - Stress [Unknown]
  - Nervousness [Unknown]
  - Haematological infection [Unknown]
  - Bacterial infection [Unknown]
  - Fatigue [Unknown]
  - Asthenia [Unknown]
  - Brain fog [Unknown]
  - Pain [Unknown]
  - Abdominal pain upper [Unknown]
  - Vomiting [Unknown]
  - Diarrhoea [Unknown]
  - Immune system disorder [Unknown]
  - Sinusitis [Unknown]
  - Blood glucose abnormal [Unknown]
  - Cough [Unknown]
  - Insomnia [Unknown]
  - Ear infection [Unknown]
  - Oropharyngeal pain [Unknown]
  - Illness [Unknown]
  - Nasopharyngitis [Unknown]
  - Inappropriate schedule of product administration [Unknown]
  - Wrong technique in device usage process [Unknown]

NARRATIVE: CASE EVENT DATE: 20230526
